FAERS Safety Report 20690790 (Version 1)
Quarter: 2022Q2

REPORT INFORMATION
  Report Type: Spontaneous
  Country: IN (occurrence: IN)
  Receive Date: 20220408
  Receipt Date: 20220408
  Transmission Date: 20220721
  Serious: Yes (Hospitalization)
  Sender: FDA-Public Use
  Company Number: IN-PFIZER INC-202200496138

PATIENT
  Age: 52 Year
  Sex: Female

DRUGS (1)
  1. CARBOPLATIN [Suspect]
     Active Substance: CARBOPLATIN
     Dosage: UNK, WEEKLY
     Dates: end: 20211222

REACTIONS (4)
  - Dyspnoea exertional [Unknown]
  - N-terminal prohormone brain natriuretic peptide increased [Unknown]
  - Alanine aminotransferase increased [Unknown]
  - Blood albumin decreased [Unknown]

NARRATIVE: CASE EVENT DATE: 20211204
